FAERS Safety Report 4677364-7 (Version None)
Quarter: 2005Q2

REPORT INFORMATION
  Report Type: 
  Country: None (occurrence: None)
  Receive Date: 20050525
  Receipt Date: 20050525
  Transmission Date: 20051028
  Serious: No
  Sender: FDA-Public Use
  Company Number: None

PATIENT
  Age: 40 Year
  Sex: Male
  Weight: 113.4 kg

DRUGS (3)
  1. LACTATED RINGER'S [Suspect]
     Indication: ANGINA UNSTABLE
     Dosage: IV
     Route: 042
     Dates: start: 20050415
  2. LACTATED RINGER'S [Suspect]
     Indication: CORONARY ARTERY DISEASE
     Dosage: IV
     Route: 042
     Dates: start: 20050415
  3. 95% STENOSIS OF PROXIMAL LAD [Concomitant]

REACTIONS (3)
  - BODY TEMPERATURE INCREASED [None]
  - CARDIAC OUTPUT DECREASED [None]
  - HYPOTENSION [None]
